FAERS Safety Report 9657886 (Version 1)
Quarter: 2013Q4

REPORT INFORMATION
  Report Type: Spontaneous
  Country: IN (occurrence: IN)
  Receive Date: 20131030
  Receipt Date: 20131030
  Transmission Date: 20140711
  Serious: Yes (Other)
  Sender: FDA-Public Use
  Company Number: IN-B.I. PHARMACEUTICALS,INC./RIDGEFIELD-2013-BI-34062IG

PATIENT
  Age: 72 Year
  Sex: Female
  Weight: 54 kg

DRUGS (7)
  1. PRADAXA [Suspect]
     Indication: BUNDLE BRANCH BLOCK LEFT
     Dates: start: 201210
  2. PRADAXA [Suspect]
     Indication: ATRIAL FIBRILLATION
     Dosage: 300 MG
  3. PRADAXA [Suspect]
     Dosage: 220 MG
     Dates: start: 201304
  4. AMIODARONE [Concomitant]
     Dates: start: 201208
  5. ATENOLOL [Concomitant]
     Dates: start: 201208
  6. ACITROM [Concomitant]
     Dates: start: 201208, end: 201210
  7. ACITROM [Concomitant]
     Dates: start: 20131010

REACTIONS (3)
  - Atrial fibrillation [Unknown]
  - Bradycardia [Unknown]
  - Atrial thrombosis [Not Recovered/Not Resolved]
